FAERS Safety Report 13279958 (Version 1)
Quarter: 2017Q1

REPORT INFORMATION
  Report Type: Report from Study
  Country: US (occurrence: US)
  Receive Date: 20170301
  Receipt Date: 20170301
  Transmission Date: 20170428
  Serious: Yes (Hospitalization)
  Sender: FDA-Public Use
  Company Number: US-AMAG PHARMACEUTICALS, INC.-AMAG201601100

PATIENT

DRUGS (1)
  1. MAKENA [Suspect]
     Active Substance: HYDROXYPROGESTERONE CAPROATE
     Indication: PRODUCT USED FOR UNKNOWN INDICATION
     Dosage: UNK
     Route: 065
     Dates: start: 20160210, end: 20160608

REACTIONS (3)
  - Uterine contractions during pregnancy [Unknown]
  - Premature delivery [Recovered/Resolved]
  - Premature rupture of membranes [Recovered/Resolved]

NARRATIVE: CASE EVENT DATE: 20160609
